FAERS Safety Report 23216857 (Version 1)
Quarter: 2023Q4

REPORT INFORMATION
  Report Type: Spontaneous
  Country: JP (occurrence: JP)
  Receive Date: 20231122
  Receipt Date: 20231122
  Transmission Date: 20240109
  Serious: Yes (Other)
  Sender: FDA-Public Use
  Company Number: JP-ASTELLAS-2023JP012843

PATIENT
  Age: 75 Year
  Sex: Female

DRUGS (3)
  1. XOSPATA [Suspect]
     Active Substance: GILTERITINIB
     Indication: Acute myeloid leukaemia
     Dosage: UNK UNK, UNKNOWN FREQ.
     Route: 065
  2. AZACITIDINE [Concomitant]
     Active Substance: AZACITIDINE
     Indication: Chemotherapy
     Dosage: UNK UNK, UNKNOWN FREQ.
     Route: 065
  3. VENETOCLAX [Concomitant]
     Active Substance: VENETOCLAX
     Indication: Chemotherapy
     Dosage: UNK UNK, UNKNOWN FREQ.
     Route: 065

REACTIONS (1)
  - Liver injury [Recovered/Resolved]
